FAERS Safety Report 20946579 (Version 1)
Quarter: 2022Q2

REPORT INFORMATION
  Report Type: Spontaneous
  Country: TH (occurrence: TH)
  Receive Date: 20220610
  Receipt Date: 20220610
  Transmission Date: 20220721
  Serious: Yes (Life-Threatening, Other)
  Sender: FDA-Public Use
  Company Number: TH-AMGEN-THASP2022099363

PATIENT
  Age: 56 Year
  Sex: Male

DRUGS (5)
  1. VECTIBIX [Suspect]
     Active Substance: PANITUMUMAB
     Indication: Colorectal cancer metastatic
     Dosage: 250 MILLIGRAM, BID, 1ST CYCLE
     Route: 065
     Dates: start: 20211104
  2. VECTIBIX [Suspect]
     Active Substance: PANITUMUMAB
     Dosage: 250 MILLIGRAM, BID, 7THCYCLE
     Route: 065
     Dates: start: 20220210
  3. IRINOTECAN [Suspect]
     Active Substance: IRINOTECAN
     Indication: Colorectal cancer metastatic
     Dosage: 1ST CYCLE
     Route: 065
  4. KEPPRA [Concomitant]
     Active Substance: LEVETIRACETAM
     Indication: Hypomagnesaemia
     Dosage: UNK
     Route: 065
     Dates: start: 20220210
  5. CALCIUM GLUCONATE [Concomitant]
     Active Substance: CALCIUM GLUCONATE
     Dosage: 10%
     Route: 065
     Dates: start: 20220210

REACTIONS (3)
  - Hypomagnesaemia [Unknown]
  - Seizure [Unknown]
  - Muscle spasms [Unknown]

NARRATIVE: CASE EVENT DATE: 20220201
